FAERS Safety Report 7504083-1 (Version None)
Quarter: 2011Q2

REPORT INFORMATION
  Report Type: 
  Country: None (occurrence: None)
  Receive Date: 20110525
  Receipt Date: 20110519
  Transmission Date: 20111010
  Serious: Yes (Other)
  Sender: FDA-Public Use
  Company Number: GB-ABBOTT-11P-167-0724865-00

PATIENT
  Sex: Female
  Weight: 66.7 kg

DRUGS (1)
  1. HUMIRA [Suspect]
     Indication: PRODUCT USED FOR UNKNOWN INDICATION
     Route: 058
     Dates: start: 20110413, end: 20110427

REACTIONS (2)
  - MYALGIA [None]
  - MUSCULAR WEAKNESS [None]
